FAERS Safety Report 6656513-5 (Version None)
Quarter: 2010Q1

REPORT INFORMATION
  Report Type: 
  Country: None (occurrence: None)
  Receive Date: 20100329
  Receipt Date: 20100303
  Transmission Date: 20100710
  Serious: Yes (Death)
  Sender: FDA-Public Use
  Company Number: FR-CEPHALON-2010001655

PATIENT
  Sex: Male

DRUGS (2)
  1. TREANDA [Suspect]
     Indication: MANTLE CELL LYMPHOMA STAGE IV
     Dates: start: 20081112, end: 20090112
  2. MABTHERA [Suspect]
     Indication: MANTLE CELL LYMPHOMA STAGE IV

REACTIONS (2)
  - GENERAL PHYSICAL HEALTH DETERIORATION [None]
  - MULTI-ORGAN FAILURE [None]
